FAERS Safety Report 16584743 (Version 1)
Quarter: 2019Q3

REPORT INFORMATION
  Report Type: Spontaneous
  Country: US (occurrence: US)
  Receive Date: 20190604
  Receipt Date: 20190604
  Transmission Date: 20191004
  Serious: No
  Sender: FDA-Public Use
  Company Number: None

PATIENT
  Age: 62 Year
  Sex: Female

DRUGS (1)
  1. ENBREL [Suspect]
     Active Substance: ETANERCEPT
     Dates: start: 201805

REACTIONS (3)
  - Product distribution issue [None]
  - Product storage error [None]
  - Therapy cessation [None]

NARRATIVE: CASE EVENT DATE: 20190604
